FAERS Safety Report 10808950 (Version 1)
Quarter: 2015Q1

REPORT INFORMATION
  Report Type: Report from Study
  Country: US (occurrence: US)
  Receive Date: 20150217
  Receipt Date: 20150217
  Transmission Date: 20150721
  Serious: No
  Sender: FDA-Public Use
  Company Number: US-ABBVIE-14K-163-1217647-00

PATIENT
  Age: 57 Year
  Sex: Female

DRUGS (14)
  1. DOCUSATE SODIUM. [Concomitant]
     Active Substance: DOCUSATE SODIUM
     Indication: IRRITABLE BOWEL SYNDROME
     Dosage: ONE TO TWO TIMES A WEEK
  2. METHOTREXATE [Concomitant]
     Active Substance: METHOTREXATE
     Indication: RHEUMATOID ARTHRITIS
  3. MULTIVITAMIN [Concomitant]
     Active Substance: VITAMINS
     Indication: PRODUCT USED FOR UNKNOWN INDICATION
  4. ATENOLOL. [Concomitant]
     Active Substance: ATENOLOL
     Indication: ARRHYTHMIA
  5. PROBIOTICS [Concomitant]
     Active Substance: PROBIOTICS NOS
     Indication: IRRITABLE BOWEL SYNDROME
  6. FLUSH FREE NIACIN [Concomitant]
     Indication: BLOOD GLUCOSE INCREASED
  7. LINZESS [Concomitant]
     Active Substance: LINACLOTIDE
     Indication: ABDOMINAL DISTENSION
  8. HYOSCYAMINE [Concomitant]
     Active Substance: HYOSCYAMINE
     Indication: IRRITABLE BOWEL SYNDROME
  9. HUMIRA [Suspect]
     Active Substance: ADALIMUMAB
     Indication: RHEUMATOID ARTHRITIS
     Dates: start: 20140224, end: 20140310
  10. FLUSH FREE NIACIN [Concomitant]
     Indication: BLOOD GLUCOSE ABNORMAL
  11. EXCEDRIN [Concomitant]
     Active Substance: ACETAMINOPHEN\ASPIRIN\CAFFEINE
     Indication: PAIN
  12. ZOVIRAX [Concomitant]
     Active Substance: ACYCLOVIR
     Indication: HERPES VIRUS INFECTION
  13. HYOSCYAMINE [Concomitant]
     Active Substance: HYOSCYAMINE
     Indication: ABDOMINAL DISTENSION
  14. VITAMIN B12 [Concomitant]
     Active Substance: CYANOCOBALAMIN
     Indication: PRODUCT USED FOR UNKNOWN INDICATION

REACTIONS (5)
  - Feeling cold [Recovering/Resolving]
  - Myalgia [Recovering/Resolving]
  - Chills [Recovering/Resolving]
  - Injection site pain [Not Recovered/Not Resolved]
  - Insomnia [Recovering/Resolving]

NARRATIVE: CASE EVENT DATE: 20140224
